FAERS Safety Report 15400037 (Version 4)
Quarter: 2018Q4

REPORT INFORMATION
  Report Type: Report from Study
  Country: US (occurrence: US)
  Receive Date: 20180919
  Receipt Date: 20181112
  Transmission Date: 20190204
  Serious: Yes (Other)
  Sender: FDA-Public Use
  Company Number: US-ACADIA PHARMACEUTICALS INC.-ACA-2018-010241

PATIENT
  Age: 74 Year
  Sex: Male
  Weight: 85 kg

DRUGS (21)
  1. NUPLAZID [Suspect]
     Active Substance: PIMAVANSERIN TARTRATE
     Indication: PARKINSON^S DISEASE PSYCHOSIS
     Dosage: UNK
     Route: 048
  2. SODIUM BICARBONATE. [Concomitant]
     Active Substance: SODIUM BICARBONATE
     Indication: PRODUCT USED FOR UNKNOWN INDICATION
     Route: 048
  3. D-MANNOSE [Concomitant]
     Indication: PRODUCT USED FOR UNKNOWN INDICATION
  4. ZINC GLUCONATE [Concomitant]
     Active Substance: ZINC GLUCONATE
     Indication: PRODUCT USED FOR UNKNOWN INDICATION
  5. GLUTATHIONE [Concomitant]
     Active Substance: GLUTATHIONE
     Indication: PRODUCT USED FOR UNKNOWN INDICATION
  6. VITAMIN E [Concomitant]
     Active Substance: .ALPHA.-TOCOPHEROL
     Indication: PRODUCT USED FOR UNKNOWN INDICATION
  7. PS [Concomitant]
     Indication: PRODUCT USED FOR UNKNOWN INDICATION
     Dosage: 100
  8. NUPLAZID [Suspect]
     Active Substance: PIMAVANSERIN TARTRATE
     Indication: DELUSION
     Dosage: 34 MG, QD
     Route: 048
     Dates: start: 20180913
  9. PROBIOTIC [Concomitant]
     Active Substance: PROBIOTICS NOS
     Indication: PRODUCT USED FOR UNKNOWN INDICATION
  10. MITO [Concomitant]
     Indication: PRODUCT USED FOR UNKNOWN INDICATION
  11. VITAMIN D [Concomitant]
     Active Substance: CHOLECALCIFEROL
     Indication: PRODUCT USED FOR UNKNOWN INDICATION
     Route: 065
  12. ALOE [Concomitant]
     Active Substance: ALOE
     Indication: PRODUCT USED FOR UNKNOWN INDICATION
  13. NUPLAZID [Suspect]
     Active Substance: PIMAVANSERIN TARTRATE
     Indication: HALLUCINATION
     Dosage: 34 MG, QD AT NIGHT
     Route: 048
     Dates: start: 20180904, end: 20180912
  14. COCONUT OIL [Concomitant]
     Active Substance: COCONUT OIL
     Indication: PRODUCT USED FOR UNKNOWN INDICATION
  15. MULTI VITAMIN [Concomitant]
     Active Substance: VITAMINS
     Indication: PRODUCT USED FOR UNKNOWN INDICATION
  16. 5 HTP [Concomitant]
     Indication: PRODUCT USED FOR UNKNOWN INDICATION
  17. DOPAMINE [Concomitant]
     Active Substance: DOPAMINE\DOPAMINE HYDROCHLORIDE
     Indication: PRODUCT USED FOR UNKNOWN INDICATION
  18. MSM [Concomitant]
     Active Substance: DIMETHYL SULFONE
     Indication: PRODUCT USED FOR UNKNOWN INDICATION
  19. VITAMIN B12 [Concomitant]
     Active Substance: CYANOCOBALAMIN
     Indication: PRODUCT USED FOR UNKNOWN INDICATION
     Route: 065
  20. COD LIVER OIL [Concomitant]
     Active Substance: COD LIVER OIL
     Indication: PRODUCT USED FOR UNKNOWN INDICATION
  21. ZEOLITE [Concomitant]

REACTIONS (16)
  - Flat affect [Unknown]
  - Psychotic disorder [Recovered/Resolved]
  - Decreased activity [Unknown]
  - Sedation [Recovered/Resolved]
  - Stupor [Recovered/Resolved]
  - Drooling [Unknown]
  - Social avoidant behaviour [Unknown]
  - Unresponsive to stimuli [Recovered/Resolved]
  - Choking [Unknown]
  - Productive cough [Unknown]
  - Saliva altered [Recovered/Resolved]
  - Crying [Unknown]
  - Mobility decreased [Unknown]
  - Confusional state [Not Recovered/Not Resolved]
  - Nonspecific reaction [Unknown]
  - Abnormal behaviour [Recovered/Resolved]

NARRATIVE: CASE EVENT DATE: 201809
